FAERS Safety Report 7456860-3 (Version None)
Quarter: 2011Q2

REPORT INFORMATION
  Report Type: 
  Country: None (occurrence: None)
  Receive Date: 20110504
  Receipt Date: 20110426
  Transmission Date: 20111010
  Serious: No
  Sender: FDA-Public Use
  Company Number: US-BIOGENIDEC-2011BI015840

PATIENT
  Sex: Female

DRUGS (2)
  1. GABAPENTIN [Concomitant]
     Indication: TRIGEMINAL NEURALGIA
  2. TYSABRI [Suspect]
     Indication: MULTIPLE SCLEROSIS
     Route: 042
     Dates: start: 20080101

REACTIONS (16)
  - POOR QUALITY SLEEP [None]
  - FACIAL PAIN [None]
  - BACK PAIN [None]
  - HYPOAESTHESIA [None]
  - VEIN DISCOLOURATION [None]
  - ANGER [None]
  - DEPRESSION [None]
  - ARTHRALGIA [None]
  - NEUROPATHY PERIPHERAL [None]
  - DYSPHEMIA [None]
  - MEMORY IMPAIRMENT [None]
  - STRESS [None]
  - FATIGUE [None]
  - FACE INJURY [None]
  - FALL [None]
  - DIZZINESS [None]
